FAERS Safety Report 7907397-6 (Version None)
Quarter: 2011Q4

REPORT INFORMATION
  Report Type: 
  Country: None (occurrence: None)
  Receive Date: 20111110
  Receipt Date: 20111108
  Transmission Date: 20120403
  Serious: No
  Sender: FDA-Public Use
  Company Number: US-BAYER-2011-108573

PATIENT
  Age: 84 Year
  Sex: Female

DRUGS (3)
  1. PROCARDIA [Concomitant]
  2. ULTRAVIST 150 [Suspect]
     Indication: COMPUTERISED TOMOGRAM
     Dosage: 80 ML, ONCE
     Route: 042
     Dates: start: 20111108, end: 20111108
  3. BARIUM [Concomitant]

REACTIONS (4)
  - EYE SWELLING [None]
  - OCULAR HYPERAEMIA [None]
  - LACRIMATION INCREASED [None]
  - ASTHENOPIA [None]
